FAERS Safety Report 6942170-7 (Version None)
Quarter: 2010Q3

REPORT INFORMATION
  Report Type: 
  Country: None (occurrence: None)
  Receive Date: 20100826
  Receipt Date: 20100726
  Transmission Date: 20110219
  Serious: No
  Sender: FDA-Public Use
  Company Number: US-BAYER-201018867BCC

PATIENT
  Age: 83 Year
  Sex: Male
  Weight: 118 kg

DRUGS (4)
  1. ALEVE [Suspect]
     Indication: ARTHRALGIA
     Dosage: AS USED: 440/UNK MG
     Route: 048
     Dates: start: 20100601, end: 20100601
  2. INSULIN [Concomitant]
  3. LISINOPRIL [Concomitant]
  4. FORMALDEHYDE [Concomitant]

REACTIONS (1)
  - CONSTIPATION [None]
